FAERS Safety Report 24916363 (Version 1)
Quarter: 2025Q1

REPORT INFORMATION
  Report Type: Spontaneous
  Country: US (occurrence: None)
  Receive Date: 20250131
  Receipt Date: 20250131
  Transmission Date: 20250408
  Serious: No
  Sender: FDA-CTU
  Company Number: None

PATIENT
  Age: 65 Year
  Sex: Male

DRUGS (1)
  1. METHOCARBAMOL [Suspect]
     Active Substance: METHOCARBAMOL
     Dosage: 750.00 MG 3 TIMES A DAY ORAL ?
     Route: 048

REACTIONS (6)
  - Hallucination, visual [None]
  - Depressed mood [None]
  - Fall [None]
  - Back pain [None]
  - Groin pain [None]
  - Encephalopathy [None]

NARRATIVE: CASE EVENT DATE: 20241014
